FAERS Safety Report 9022634 (Version 1)
Quarter: 2013Q1

REPORT INFORMATION
  Report Type: Spontaneous
  Country: NL (occurrence: NL)
  Receive Date: 20130120
  Receipt Date: 20130120
  Transmission Date: 20140127
  Serious: Yes (Hospitalization)
  Sender: FDA-Public Use
  Company Number: NL-AMGEN-NLDSP2013003660

PATIENT
  Sex: Female

DRUGS (8)
  1. ENBREL [Suspect]
     Indication: PSORIATIC ARTHROPATHY
     Dosage: 50 MG, WEEKLY
     Dates: start: 2009
  2. VALSARTAN [Concomitant]
     Dosage: 80 MG, 1X/DAY
  3. PANTOPRAZOL [Concomitant]
     Dosage: 40 MG, 2X/DAY
  4. ASCAL                              /00002702/ [Concomitant]
     Dosage: 80 MG, 1X/DAY
  5. BISACODYL [Concomitant]
     Dosage: UNK UNK, UNK
  6. MELOXICAM [Concomitant]
     Dosage: UNK UNK, UNK
  7. FOLIC ACID [Concomitant]
     Dosage: UNK UNK, UNK
  8. MTX                                /00113801/ [Concomitant]
     Dosage: UNK UNK, UNK
     Route: 058

REACTIONS (1)
  - Arthropathy [Recovering/Resolving]
